FAERS Safety Report 25125006 (Version 1)
Quarter: 2025Q1

REPORT INFORMATION
  Report Type: Spontaneous
  Country: US (occurrence: None)
  Receive Date: 20250326
  Receipt Date: 20250326
  Transmission Date: 20250408
  Serious: Yes (Other)
  Sender: FDA-CTU
  Company Number: None

PATIENT
  Age: 66 Year
  Sex: Female
  Weight: 74.25 kg

DRUGS (12)
  1. SEMAGLUTIDE [Suspect]
     Active Substance: SEMAGLUTIDE
     Indication: Weight decreased
     Route: 058
     Dates: start: 20240701, end: 20240901
  2. MINOXIDIL [Concomitant]
     Active Substance: MINOXIDIL
  3. UNSPECIFIED INGREDIENT [Concomitant]
     Active Substance: UNSPECIFIED INGREDIENT
  4. Losartin 100 mg [Concomitant]
  5. Hydroxychloriquine 100 mg [Concomitant]
  6. PILOCARPINE [Concomitant]
     Active Substance: PILOCARPINE
  7. UBRELVY [Concomitant]
     Active Substance: UBROGEPANT
  8. Wellbutein [Concomitant]
  9. Minoxilil topical [Concomitant]
  10. vitamin d3 5000u [Concomitant]
  11. Zinc 50 mg [Concomitant]
  12. vitamin 1000mg [Concomitant]

REACTIONS (3)
  - Drug ineffective [None]
  - Depression [None]
  - Weight increased [None]

NARRATIVE: CASE EVENT DATE: 20240901
